FAERS Safety Report 15821551 (Version 1)
Quarter: 2019Q1

REPORT INFORMATION
  Report Type: Spontaneous
  Country: PT (occurrence: PT)
  Receive Date: 20190114
  Receipt Date: 20190114
  Transmission Date: 20190417
  Serious: Yes (Other)
  Sender: FDA-Public Use
  Company Number: PT-PFIZER INC-2019013347

PATIENT
  Age: 8 Year
  Sex: Female
  Weight: 42 kg

DRUGS (3)
  1. SOLU-MEDROL [Suspect]
     Active Substance: METHYLPREDNISOLONE SODIUM SUCCINATE
     Indication: JUVENILE IDIOPATHIC ARTHRITIS
     Dosage: 500 MG, SINGLE
     Route: 042
     Dates: start: 20181211, end: 20181211
  2. METEX [METHOTREXATE SODIUM] [Interacting]
     Active Substance: METHOTREXATE SODIUM
     Dosage: UNK
     Route: 058
  3. HUMIRA [Interacting]
     Active Substance: ADALIMUMAB
     Dosage: UNK

REACTIONS (2)
  - Dermatitis bullous [Recovered/Resolved]
  - Drug interaction [Recovered/Resolved]

NARRATIVE: CASE EVENT DATE: 20181211
